FAERS Safety Report 4713116-7 (Version None)
Quarter: 2005Q3

REPORT INFORMATION
  Report Type: 
  Country: None (occurrence: None)
  Receive Date: 20050701
  Receipt Date: 20041018
  Transmission Date: 20060218
  Serious: Yes (Other)
  Sender: FDA-Public Use
  Company Number: 2004080337

PATIENT
  Age: 12 Year
  Sex: Male

DRUGS (1)
  1. ZOLOFT [Suspect]
     Indication: ILL-DEFINED DISORDER
     Dates: end: 20041001

REACTIONS (2)
  - VENTRICULAR FLUTTER [None]
  - VENTRICULAR TACHYCARDIA [None]
